FAERS Safety Report 7601236-9 (Version None)
Quarter: 2011Q3

REPORT INFORMATION
  Report Type: 
  Country: None (occurrence: None)
  Receive Date: 20110711
  Receipt Date: 20110704
  Transmission Date: 20111222
  Serious: Yes (Other)
  Sender: FDA-Public Use
  Company Number: US-B.I. PHARMACEUTICALS,INC./RIDGEFIELD-2011-BP-16933PF

PATIENT
  Sex: Male

DRUGS (3)
  1. CHANTIX [Suspect]
     Indication: SMOKING CESSATION THERAPY
     Route: 065
     Dates: start: 20070101
  2. SPIRIVA [Suspect]
     Route: 065
  3. SYMBICORT [Suspect]
     Route: 055

REACTIONS (2)
  - DYSPHONIA [None]
  - DYSPNOEA [None]
